FAERS Safety Report 6165284-0 (Version None)
Quarter: 2009Q2

REPORT INFORMATION
  Report Type: 
  Country: None (occurrence: None)
  Receive Date: 20090423
  Receipt Date: 20090416
  Transmission Date: 20091009
  Serious: Yes (Other)
  Sender: FDA-Public Use
  Company Number: B0567729A

PATIENT
  Age: 13 Year
  Sex: Male

DRUGS (3)
  1. ALKERAN [Suspect]
     Indication: BONE MARROW CONDITIONING REGIMEN
     Dosage: 140MGM2 PER DAY
     Route: 042
     Dates: start: 20090301
  2. FRAGMIN [Concomitant]
     Route: 042
  3. PROGRAF [Concomitant]
     Route: 065

REACTIONS (5)
  - HAEMORRHAGE SUBCUTANEOUS [None]
  - MUSCLE HAEMORRHAGE [None]
  - OEDEMA PERIPHERAL [None]
  - TENDERNESS [None]
  - VASCULITIS [None]
